FAERS Safety Report 5897504-1 (Version None)
Quarter: 2008Q3

REPORT INFORMATION
  Report Type: 
  Country: None (occurrence: None)
  Receive Date: 20080925
  Receipt Date: 20080811
  Transmission Date: 20090109
  Serious: Yes (Hospitalization)
  Sender: FDA-Public Use
  Company Number: GB-DENTSPLY-2008-0073-EUR

PATIENT
  Age: 40 Year
  Sex: Female

DRUGS (4)
  1. XYLOCAINE [Suspect]
     Dates: start: 20080101, end: 20080101
  2. KENALOG [Suspect]
     Indication: CARPAL TUNNEL SYNDROME
     Dates: start: 20080226, end: 20080226
  3. KENALOG [Suspect]
     Indication: PERIARTHRITIS
  4. MIRTAZAPINE [Concomitant]
     Indication: DEPRESSION
     Route: 046
     Dates: start: 20060215, end: 20080327

REACTIONS (2)
  - MENORRHAGIA [None]
  - PELVIC PAIN [None]
